FAERS Safety Report 8163321-5 (Version None)
Quarter: 2012Q1

REPORT INFORMATION
  Report Type: 
  Country: None (occurrence: None)
  Receive Date: 20120224
  Receipt Date: 20110622
  Transmission Date: 20120608
  Serious: No
  Sender: FDA-Public Use
  Company Number: US-PFIZER INC-K201100749

PATIENT
  Age: 23 Year
  Sex: Male

DRUGS (11)
  1. CLONAZEPAM [Concomitant]
     Dosage: UNK
  2. HALCION [Concomitant]
     Dosage: UNK
  3. ATIVAN [Concomitant]
     Dosage: UNK
  4. ASMANEX TWISTHALER [Concomitant]
     Dosage: UNK
  5. FLECTOR [Suspect]
     Indication: EHLERS-DANLOS SYNDROME
     Dosage: 1 PATCH, QD FOR 12 HOURS
     Route: 061
     Dates: start: 20110601
  6. DIAZEPAM [Concomitant]
     Dosage: UNK
  7. OXYCODONE [Concomitant]
     Dosage: UNK
  8. OMEPRAZOLE [Concomitant]
     Dosage: UNK
  9. ALBUTEROL [Concomitant]
     Dosage: UNK
  10. VANCOMYCIN [Concomitant]
     Dosage: UNK
  11. ZOLOFT [Concomitant]
     Dosage: UNK

REACTIONS (3)
  - APPLICATION SITE PRURITUS [None]
  - APPLICATION SITE PAIN [None]
  - APPLICATION SITE RASH [None]
